FAERS Safety Report 11814193 (Version 1)
Quarter: 2015Q4

REPORT INFORMATION
  Report Type: Spontaneous
  Country: US (occurrence: US)
  Receive Date: 20151209
  Receipt Date: 20151209
  Transmission Date: 20160305
  Serious: No
  Sender: FDA-Public Use
  Company Number: US-BAYER-2015-485270

PATIENT
  Age: 86 Year
  Sex: Female
  Weight: 90.7 kg

DRUGS (3)
  1. MIRALAX [Suspect]
     Active Substance: POLYETHYLENE GLYCOL 3350
     Indication: CONSTIPATION
     Dosage: UNK
     Route: 048
     Dates: start: 201511
  2. METOLAZONE. [Concomitant]
     Active Substance: METOLAZONE
  3. BUMETANIDE. [Concomitant]
     Active Substance: BUMETANIDE

REACTIONS (3)
  - Product use issue [None]
  - Intercepted medication error [None]
  - Drug ineffective [None]
